FAERS Safety Report 23750605 (Version 1)
Quarter: 2024Q2

REPORT INFORMATION
  Report Type: Report from Study
  Country: GB (occurrence: GB)
  Receive Date: 20240417
  Receipt Date: 20240417
  Transmission Date: 20240716
  Serious: Yes (Hospitalization, Other)
  Sender: FDA-Public Use
  Company Number: GB-SAMSUNG BIOEPIS-SB-2024-04599

PATIENT
  Sex: Female

DRUGS (2)
  1. IMRALDI [Suspect]
     Active Substance: ADALIMUMAB
     Indication: Arthritis
     Dosage: 40 MG/0.8 ML
     Route: 058
     Dates: end: 20240106
  2. IMRALDI [Suspect]
     Active Substance: ADALIMUMAB
     Indication: Arthritis

REACTIONS (5)
  - Atrial fibrillation [Unknown]
  - Pneumonia [Unknown]
  - Urinary tract infection [Unknown]
  - Illness [Unknown]
  - Off label use [Unknown]
